FAERS Safety Report 8907740 (Version 2)
Quarter: 2013Q1

REPORT INFORMATION
  Report Type: Spontaneous
  Country: US (occurrence: US)
  Receive Date: 20121113
  Receipt Date: 20130221
  Transmission Date: 20140127
  Serious: Yes (Other)
  Sender: FDA-Public Use
  Company Number: CHPA2012US023463

PATIENT
  Age: 71 Year
  Sex: Female

DRUGS (1)
  1. BENEFIBER PLUS CALCIUM WITH WHEAT DEXTRIN [Suspect]
     Indication: CONSTIPATION
     Dosage: 4 TSP, QD
     Route: 048
     Dates: start: 2010

REACTIONS (5)
  - Blood pressure abnormal [Not Recovered/Not Resolved]
  - Blood cholesterol [Not Recovered/Not Resolved]
  - Therapeutic response unexpected [Unknown]
  - Off label use [Unknown]
  - Incorrect dose administered [Unknown]
